FAERS Safety Report 17446402 (Version 4)
Quarter: 2021Q2

REPORT INFORMATION
  Report Type: Spontaneous
  Country: CA (occurrence: CA)
  Receive Date: 20200221
  Receipt Date: 20210419
  Transmission Date: 20210716
  Serious: Yes (Other)
  Sender: FDA-Public Use
  Company Number: NVSC2020CA045316

PATIENT
  Sex: Female

DRUGS (12)
  1. COSENTYX [Suspect]
     Active Substance: SECUKINUMAB
     Indication: RHEUMATOID ARTHRITIS
     Dosage: 15 MG, QD
     Route: 058
  2. ENBREL [Suspect]
     Active Substance: ETANERCEPT
     Indication: RHEUMATOID ARTHRITIS
     Dosage: UNK
     Route: 065
  3. INFLIXIMAB [Suspect]
     Active Substance: INFLIXIMAB
     Indication: PSORIASIS
     Dosage: 1 DF, UNKNOWN
     Route: 042
  4. METHOTREXATE. [Suspect]
     Active Substance: METHOTREXATE
     Indication: RHEUMATOID ARTHRITIS
     Dosage: UNK
     Route: 065
  5. SULFASALAZINE. [Suspect]
     Active Substance: SULFASALAZINE
     Indication: RHEUMATOID ARTHRITIS
     Dosage: UNK
     Route: 065
  6. CYCLOSPORINE. [Suspect]
     Active Substance: CYCLOSPORINE
     Indication: PRODUCT USED FOR UNKNOWN INDICATION
     Dosage: UNK
     Route: 065
  7. HUMIRA [Suspect]
     Active Substance: ADALIMUMAB
     Indication: RHEUMATOID ARTHRITIS
     Dosage: UNK
     Route: 058
  8. SIMPONI [Suspect]
     Active Substance: GOLIMUMAB
     Indication: RHEUMATOID ARTHRITIS
     Dosage: UNK
     Route: 058
  9. REMICADE [Suspect]
     Active Substance: INFLIXIMAB
     Indication: PRODUCT USED FOR UNKNOWN INDICATION
     Dosage: UNK
     Route: 042
  10. METHOTREXATE. [Suspect]
     Active Substance: METHOTREXATE
     Indication: PSORIASIS
     Dosage: 20 MG, QW
     Route: 065
  11. STELARA [Suspect]
     Active Substance: USTEKINUMAB
     Indication: RHEUMATOID ARTHRITIS
     Dosage: UNK
     Route: 058
  12. CIMZIA [Suspect]
     Active Substance: CERTOLIZUMAB PEGOL
     Indication: RHEUMATOID ARTHRITIS
     Dosage: UNK
     Route: 058

REACTIONS (9)
  - Drug ineffective [Unknown]
  - Diarrhoea [Unknown]
  - Drug intolerance [Unknown]
  - Rheumatoid arthritis [Unknown]
  - Treatment failure [Unknown]
  - Depressed mood [Unknown]
  - Skin plaque [Unknown]
  - Product use in unapproved indication [Unknown]
  - Off label use [Unknown]
